FAERS Safety Report 5200033-1 (Version None)
Quarter: 2007Q1

REPORT INFORMATION
  Report Type: 
  Country: None (occurrence: None)
  Receive Date: 20070105
  Receipt Date: 20061222
  Transmission Date: 20070707
  Serious: Yes (Death, Hospitalization)
  Sender: FDA-Public Use
  Company Number: US-AMGEN-US204912

PATIENT
  Age: 24 Year
  Sex: Female

DRUGS (7)
  1. ENBREL [Suspect]
     Indication: SYSTEMIC LUPUS ERYTHEMATOSUS
     Route: 065
  2. FLUOXETINE [Concomitant]
     Route: 065
  3. PANTOPRAZOLE SODIUM [Concomitant]
     Route: 065
  4. PREDNISONE TAB [Concomitant]
     Route: 065
  5. LORAZEPAM [Concomitant]
     Route: 065
  6. NICOTINE TRANSDERMAL [Concomitant]
     Route: 062
  7. FENTANYL TRANSDERMAL SYSTEM [Concomitant]
     Route: 062

REACTIONS (10)
  - ACANTHAMOEBA INFECTION [None]
  - ENCEPHALITIS PROTOZOAL [None]
  - ENTEROCOCCAL INFECTION [None]
  - HERPES SIMPLEX [None]
  - KLEBSIELLA INFECTION [None]
  - ORAL CANDIDIASIS [None]
  - PSEUDOMONAS INFECTION [None]
  - SPUTUM CULTURE POSITIVE [None]
  - SYSTEMIC LUPUS ERYTHEMATOSUS [None]
  - URINARY TRACT INFECTION [None]
